FAERS Safety Report 8399908-4 (Version None)
Quarter: 2012Q2

REPORT INFORMATION
  Report Type: 
  Country: None (occurrence: None)
  Receive Date: 20120531
  Receipt Date: 20120521
  Transmission Date: 20120825
  Serious: Yes (Disabling, Other)
  Sender: FDA-Public Use
  Company Number: US-ELI_LILLY_AND_COMPANY-US201101003756

PATIENT
  Sex: Female

DRUGS (7)
  1. FORTEO [Suspect]
     Dosage: 20 UG, DAILY (1/D)
     Dates: start: 20110110
  2. FORTEO [Suspect]
     Indication: OSTEOPOROSIS
     Dosage: 20 UG, DAILY (1/D)
     Dates: start: 20101201, end: 20110107
  3. GLUCOSAMINE [Concomitant]
  4. FORTEO [Suspect]
     Dosage: 20 UG, QD
  5. FORTEO [Suspect]
     Dosage: 20 UG, QD
  6. FORTEO [Suspect]
     Dosage: 20 UG, QD
  7. FORTEO [Suspect]
     Dosage: 20 UG, QD

REACTIONS (14)
  - DRUG DOSE OMISSION [None]
  - BACK PAIN [None]
  - ABDOMINAL DISCOMFORT [None]
  - ARTHRALGIA [None]
  - CONSTIPATION [None]
  - NAUSEA [None]
  - ABDOMINAL PAIN UPPER [None]
  - APHAGIA [None]
  - DEPRESSION [None]
  - ABASIA [None]
  - BONE PAIN [None]
  - PARAESTHESIA [None]
  - ALOPECIA [None]
  - MUSCLE SPASMS [None]
